FAERS Safety Report 4735336-8 (Version None)
Quarter: 2005Q3

REPORT INFORMATION
  Report Type: 
  Country: None (occurrence: None)
  Receive Date: 20050805
  Receipt Date: 20050729
  Transmission Date: 20060218
  Serious: Yes (Other)
  Sender: FDA-Public Use
  Company Number: US-BRISTOL-MYERS SQUIBB COMPANY-13056874

PATIENT
  Age: 17 Year
  Sex: Female
  Weight: 50 kg

DRUGS (4)
  1. ABILIFY [Suspect]
     Indication: AFFECTIVE DISORDER
     Route: 048
     Dates: start: 20050101, end: 20050728
  2. ABILIFY [Suspect]
     Indication: BIPOLAR DISORDER
     Route: 048
     Dates: start: 20050101, end: 20050728
  3. COGENTIN [Concomitant]
  4. CONCERTA [Concomitant]

REACTIONS (1)
  - FACIAL PALSY [None]
